FAERS Safety Report 23651908 (Version 1)
Quarter: 2024Q1

REPORT INFORMATION
  Report Type: Spontaneous
  Country: FR (occurrence: FR)
  Receive Date: 20240320
  Receipt Date: 20240320
  Transmission Date: 20240410
  Serious: Yes (Hospitalization)
  Sender: FDA-Public Use
  Company Number: None

PATIENT
  Age: 37 Year
  Sex: Female
  Weight: 48 kg

DRUGS (2)
  1. ENTYVIO [Suspect]
     Active Substance: VEDOLIZUMAB
     Indication: Crohn^s disease
     Dosage: 300 MILLIGRAM, Q3WEEKS
     Route: 048
     Dates: start: 202304, end: 20240108
  2. AUGMENTIN [Concomitant]
     Active Substance: AMOXICILLIN\CLAVULANATE POTASSIUM
     Indication: Rash
     Dosage: UNK
     Route: 048
     Dates: start: 20240125, end: 20240131

REACTIONS (1)
  - Subcorneal pustular dermatosis [Recovering/Resolving]

NARRATIVE: CASE EVENT DATE: 20240128
